FAERS Safety Report 10205967 (Version 1)
Quarter: 2014Q2

REPORT INFORMATION
  Report Type: Spontaneous
  Country: US (occurrence: None)
  Receive Date: 20140527
  Receipt Date: 20140527
  Transmission Date: 20141212
  Serious: Yes (Hospitalization)
  Sender: FDA-Public Use
  Company Number: None

PATIENT
  Age: 55 Year
  Sex: Male

DRUGS (15)
  1. MYCOPHENOLATE [Suspect]
     Indication: IMMUNOSUPPRESSANT DRUG THERAPY
     Route: 048
     Dates: start: 20120128, end: 20120205
  2. FERROUS SULFATE [Concomitant]
  3. DOCUSATE [Concomitant]
  4. FOLIC ACID [Concomitant]
  5. INSULIN ASPART [Concomitant]
  6. INSULIN GLARGINE [Concomitant]
  7. LANSOPRAZOLE [Concomitant]
  8. METOPROLOL [Concomitant]
  9. MULTIVITAMIN [Concomitant]
  10. NYSTATIN [Concomitant]
  11. OXYCODONE-ACETAMINOPHEN [Concomitant]
  12. PREDNISONE [Concomitant]
  13. SIMVASTATIN [Concomitant]
  14. TACROLIMUS [Concomitant]
  15. VALGANCICLOVIR [Concomitant]

REACTIONS (2)
  - Nausea [None]
  - Vomiting [None]
